FAERS Safety Report 4592554-X (Version None)
Quarter: 2005Q1

REPORT INFORMATION
  Report Type: 
  Country: None (occurrence: None)
  Receive Date: 20050222
  Receipt Date: 20050211
  Transmission Date: 20050727
  Serious: Yes (Other)
  Sender: FDA-Public Use
  Company Number: 2005-02-0798

PATIENT
  Sex: Female

DRUGS (1)
  1. CLARITIN [Suspect]
     Dosage: QD ORAL
     Route: 048

REACTIONS (3)
  - BULIMIA NERVOSA [None]
  - SELF INJURIOUS BEHAVIOUR [None]
  - SELF MUTILATION [None]
